FAERS Safety Report 5683181-1 (Version None)
Quarter: 2008Q1

REPORT INFORMATION
  Report Type: 
  Country: None (occurrence: None)
  Receive Date: 20080327
  Receipt Date: 20080304
  Transmission Date: 20080703
  Serious: No
  Sender: FDA-Public Use
  Company Number: US-BOEHRINGER INGELHEIM GMBH, GERMANY-2008-BP-03283BP

PATIENT
  Age: 60 Year
  Sex: Female

DRUGS (4)
  1. ZANTAC 75 [Suspect]
     Indication: DYSPEPSIA
     Route: 048
     Dates: start: 20080304, end: 20080304
  2. DIOVAN [Concomitant]
     Indication: BLOOD PRESSURE
  3. QUINIDINE HCL [Concomitant]
     Indication: BLOOD PRESSURE
  4. LEVOXYL [Concomitant]
     Indication: THYROID DISORDER

REACTIONS (3)
  - BLOOD PRESSURE INCREASED [None]
  - NERVOUSNESS [None]
  - TREMOR [None]
